FAERS Safety Report 25452728 (Version 2)
Quarter: 2025Q3

REPORT INFORMATION
  Report Type: Report from Study
  Country: US (occurrence: US)
  Receive Date: 20250618
  Receipt Date: 20250721
  Transmission Date: 20251021
  Serious: Yes (Other)
  Sender: ABBVIE
  Company Number: US-ABBVIE-6265197

PATIENT
  Sex: Female

DRUGS (3)
  1. HUMIRA [Suspect]
     Active Substance: ADALIMUMAB
     Indication: Rheumatoid arthritis
     Route: 058
     Dates: start: 20240216
  2. HUMIRA [Suspect]
     Active Substance: ADALIMUMAB
     Route: 058
     Dates: start: 20220101
  3. ELIQUIS [Suspect]
     Active Substance: APIXABAN
     Indication: Product used for unknown indication
     Route: 065

REACTIONS (8)
  - Renal failure [Recovering/Resolving]
  - Cardiac failure [Recovering/Resolving]
  - Sinus disorder [Unknown]
  - Sinusitis [Recovering/Resolving]
  - Seasonal allergy [Unknown]
  - Cardiac disorder [Recovering/Resolving]
  - Bone pain [Recovering/Resolving]
  - Epistaxis [Unknown]
